FAERS Safety Report 7038249-4 (Version None)
Quarter: 2010Q4

REPORT INFORMATION
  Report Type: 
  Country: None (occurrence: None)
  Receive Date: 20101011
  Receipt Date: 20091208
  Transmission Date: 20110411
  Serious: No
  Sender: FDA-Public Use
  Company Number: US-PFIZER INC-2009308954

PATIENT
  Sex: Female
  Weight: 79.4 kg

DRUGS (3)
  1. GABAPENTIN [Suspect]
     Indication: NERVE COMPRESSION
     Dosage: 400 MG, 1X/DAY
     Dates: start: 20091207
  2. GABAPENTIN [Suspect]
     Dosage: 400 MG, 1X/DAY
  3. TEMAZEPAM [Concomitant]
     Dosage: 7.5 MG, UNK

REACTIONS (2)
  - HEADACHE [None]
  - VERTIGO [None]
